FAERS Safety Report 9745094 (Version 2)
Quarter: 2013Q4

REPORT INFORMATION
  Report Type: Report from Study
  Country: US (occurrence: US)
  Receive Date: 20131211
  Receipt Date: 20131224
  Transmission Date: 20140711
  Serious: Yes (Death)
  Sender: FDA-Public Use
  Company Number: US-ROCHE-1317653

PATIENT
  Sex: Female
  Weight: 45 kg

DRUGS (3)
  1. PERJETA [Suspect]
     Indication: BREAST CANCER METASTATIC
     Dosage: 1L DOSE; EVERY 3
     Route: 065
  2. HERCEPTIN [Suspect]
     Indication: BREAST CANCER METASTATIC
     Route: 065
  3. ZELBORAF [Suspect]
     Indication: BREAST CANCER METASTATIC
     Route: 065

REACTIONS (1)
  - Disease progression [Fatal]
